FAERS Safety Report 13247062 (Version 3)
Quarter: 2018Q1

REPORT INFORMATION
  Report Type: Report from Study
  Country: IT (occurrence: IT)
  Receive Date: 20170217
  Receipt Date: 20180212
  Transmission Date: 20180508
  Serious: Yes (Hospitalization)
  Sender: FDA-Public Use
  Company Number: IT-ALLERGAN-1706003US

PATIENT
  Age: 49 Year
  Sex: Female

DRUGS (3)
  1. CITALOPRAM HYDROBROMIDE UNK [Suspect]
     Active Substance: CITALOPRAM HYDROBROMIDE
     Indication: INTENTIONAL SELF-INJURY
     Dosage: 600 MG, IN TOTAL
     Route: 048
     Dates: start: 20160806, end: 20160806
  2. CITALOPRAM HYDROBROMIDE UNK [Suspect]
     Active Substance: CITALOPRAM HYDROBROMIDE
     Indication: OFF LABEL USE
  3. RIVOTRIL [Suspect]
     Active Substance: CLONAZEPAM
     Indication: INTENTIONAL SELF-INJURY
     Dosage: 75 MG, IN TOTAL
     Route: 048
     Dates: start: 20160806, end: 20160806

REACTIONS (5)
  - Loss of consciousness [Recovered/Resolved]
  - Toxicity to various agents [Recovered/Resolved]
  - Drug abuse [Recovered/Resolved]
  - Intentional overdose [Unknown]
  - Intentional self-injury [Recovered/Resolved]

NARRATIVE: CASE EVENT DATE: 20160806
